FAERS Safety Report 18218961 (Version 1)
Quarter: 2020Q3

REPORT INFORMATION
  Report Type: Spontaneous
  Country: BR (occurrence: BR)
  Receive Date: 20200901
  Receipt Date: 20200901
  Transmission Date: 20201103
  Serious: Yes (Hospitalization, Other)
  Sender: FDA-Public Use
  Company Number: BR-BAYER-2020-112809

PATIENT
  Age: 18 Year
  Sex: Female

DRUGS (2)
  1. MIRENA [Suspect]
     Active Substance: LEVONORGESTREL
     Indication: CONTRACEPTION
     Dosage: 20 ?G PER DAY CONTINUOUSLY
     Route: 015
     Dates: start: 202001
  2. VIDMAX [Concomitant]
     Active Substance: TOPIRAMATE
     Indication: MIGRAINE
     Dosage: UNK UNK, QD
     Route: 048
     Dates: start: 201906

REACTIONS (16)
  - Breast pain [Recovered/Resolved]
  - Nausea [Recovered/Resolved]
  - Uterine infection [None]
  - Dysmenorrhoea [None]
  - Thirst [Recovered/Resolved]
  - Pollakiuria [Recovered/Resolved]
  - Appendicectomy [None]
  - Dysuria [Recovered/Resolved]
  - Syncope [None]
  - Kidney infection [None]
  - Nephrolithiasis [None]
  - Sexually transmitted disease [None]
  - Uterine pain [Recovered/Resolved]
  - Road traffic accident [Recovered/Resolved]
  - Uterine cyst [None]
  - Back pain [Recovered/Resolved]

NARRATIVE: CASE EVENT DATE: 202001
